FAERS Safety Report 19662402 (Version 2)
Quarter: 2021Q3

REPORT INFORMATION
  Report Type: Spontaneous
  Country: BR (occurrence: BR)
  Receive Date: 20210805
  Receipt Date: 20210818
  Transmission Date: 20211014
  Serious: Yes (Other)
  Sender: FDA-Public Use
  Company Number: BR-ALLERGAN-2127301US

PATIENT
  Sex: Female

DRUGS (10)
  1. CLEXANE [Concomitant]
     Active Substance: ENOXAPARIN SODIUM
     Dosage: 40 MG
     Route: 058
     Dates: start: 20210613, end: 20210624
  2. EXODUS [ESCITALOPRAM OXALATE] [Concomitant]
     Dosage: 10 MG, QD
  3. ESCITALOPRAM OXALATE ? BP [Suspect]
     Active Substance: ESCITALOPRAM OXALATE
     Indication: DEPRESSION
     Dosage: 20 MG, QD
     Route: 048
     Dates: start: 20210614, end: 20210617
  4. SEKI [CLOPERASTINE] [Concomitant]
     Dosage: STRENGTH:3.54 MG/ML XPE 120 ML
     Route: 048
     Dates: start: 20210613, end: 20210623
  5. PANTOZOLE [Concomitant]
     Active Substance: PANTOPRAZOLE SODIUM
     Dosage: 40 MG, QD
     Route: 048
     Dates: start: 20210613, end: 20210623
  6. METHYLPREDNISOLONE. [Concomitant]
     Active Substance: METHYLPREDNISOLONE
     Dosage: 80 MG, QD
     Route: 042
     Dates: start: 20210613, end: 20210622
  7. LACTULONA [Concomitant]
     Dosage: STRENGTH: 667 MG/ML XPE 120 ML
     Route: 048
     Dates: start: 20210613, end: 20210620
  8. CORUS [LOSARTAN POTASSIUM] [Concomitant]
     Dosage: 50 MG, QD
  9. MAGNE B6 [Concomitant]
     Active Substance: MAGNESIUM\PYRIDOXINE
     Dosage: 1 DF, QD
  10. ULTRAVIST [Concomitant]
     Active Substance: IOPROMIDE
     Dosage: STRENGTH: 768.86 MG/ML AMPOULES 50ML
     Route: 042
     Dates: start: 20210615, end: 20210615

REACTIONS (3)
  - Oxygen saturation decreased [Recovered/Resolved]
  - Syncope [Recovered/Resolved]
  - Loss of consciousness [Recovered/Resolved]

NARRATIVE: CASE EVENT DATE: 20210615
